FAERS Safety Report 7539639-3 (Version None)
Quarter: 2011Q2

REPORT INFORMATION
  Report Type: 
  Country: None (occurrence: None)
  Receive Date: 20110610
  Receipt Date: 20110607
  Transmission Date: 20111010
  Serious: No
  Sender: FDA-Public Use
  Company Number: US-PFIZER INC-2011123763

PATIENT
  Age: 71 Year
  Sex: Female

DRUGS (1)
  1. PREMPRO [Suspect]
     Dosage: UNK
     Route: 048

REACTIONS (1)
  - HOT FLUSH [None]
